FAERS Safety Report 10256749 (Version 1)
Quarter: 2014Q2

REPORT INFORMATION
  Report Type: Spontaneous
  Country: US (occurrence: US)
  Receive Date: 20140624
  Receipt Date: 20140624
  Transmission Date: 20141212
  Serious: No
  Sender: FDA-Public Use
  Company Number: US-009507513-1406USA007196

PATIENT
  Age: 25 Year
  Sex: Female
  Weight: 93.9 kg

DRUGS (2)
  1. NEXPLANON [Suspect]
     Indication: CONTRACEPTION
     Dosage: ONE DEVICE/THREE YEARS
     Route: 059
     Dates: start: 20140513, end: 2014
  2. NEXPLANON [Suspect]
     Dosage: UNK
     Route: 059
     Dates: start: 2014

REACTIONS (2)
  - Device expulsion [Recovered/Resolved]
  - Wrong technique in drug usage process [Unknown]
